FAERS Safety Report 4777382-4 (Version None)
Quarter: 2005Q3

REPORT INFORMATION
  Report Type: 
  Country: None (occurrence: None)
  Receive Date: 20050915
  Receipt Date: 20050906
  Transmission Date: 20060218
  Serious: Yes (Other)
  Sender: FDA-Public Use
  Company Number: 2005124864

PATIENT
  Age: 78 Year
  Sex: Female
  Weight: 88.4514 kg

DRUGS (11)
  1. ZMAX [Suspect]
     Indication: PNEUMONIA
     Dosage: ORAL
     Route: 048
     Dates: start: 20050823, end: 20050823
  2. ZANTAC [Concomitant]
  3. FOSAMAX [Concomitant]
  4. MULTIVITAMINS W/MINERALS (MINERALS NOS, VITAMINS NOS) [Concomitant]
  5. CALCIUM WITH VITAMIN D (CALCIUM PHOSPHATE, CALCIUM SODIUM LACTATE, ERG [Concomitant]
  6. PREVACID [Concomitant]
  7. TRIAMTERENE (TRIAMTERENE) [Concomitant]
  8. CALAN [Concomitant]
  9. ALLOPURINOL [Concomitant]
  10. LAXATIVES (LAXATIVES) [Concomitant]
  11. LIPITOR [Concomitant]

REACTIONS (2)
  - DIARRHOEA [None]
  - FAECES DISCOLOURED [None]
